FAERS Safety Report 23336231 (Version 2)
Quarter: 2024Q4

REPORT INFORMATION
  Report Type: Report from Study
  Country: US (occurrence: US)
  Receive Date: 20231225
  Receipt Date: 20241022
  Transmission Date: 20250115
  Serious: No
  Sender: ROCHE
  Company Number: US-ROCHE-2899340

PATIENT
  Age: 28 Year
  Sex: Male

DRUGS (6)
  1. PULMOZYME [Suspect]
     Active Substance: DORNASE ALFA
     Indication: Scoliosis
     Dosage: AT BEDTIME
     Route: 065
  2. PULMOZYME [Suspect]
     Active Substance: DORNASE ALFA
     Indication: Chronic respiratory failure
     Dosage: NEBULIZE THE CONTENTS OF 1 VIAL(S) EVERY NIGHT AT BEDTIME ?AMPUL
     Route: 065
  3. PULMOZYME [Suspect]
     Active Substance: DORNASE ALFA
     Indication: Dependence on respirator
  4. PULMOZYME [Suspect]
     Active Substance: DORNASE ALFA
     Indication: Hypercapnia
  5. PULMOZYME [Suspect]
     Active Substance: DORNASE ALFA
     Indication: Scoliosis
  6. PULMOZYME [Suspect]
     Active Substance: DORNASE ALFA
     Indication: Mechanical ventilation

REACTIONS (2)
  - Off label use [Unknown]
  - No adverse event [Unknown]
